FAERS Safety Report 4335126-4 (Version None)
Quarter: 2004Q2

REPORT INFORMATION
  Report Type: 
  Country: None (occurrence: None)
  Receive Date: 20040408
  Receipt Date: 20040402
  Transmission Date: 20050107
  Serious: Yes (Other)
  Sender: FDA-Public Use
  Company Number: PHEH2004US03807

PATIENT
  Age: 66 Year
  Sex: Male

DRUGS (1)
  1. STARLIX [Suspect]
     Dosage: 60 MG, TID
     Route: 048
     Dates: start: 20031001

REACTIONS (2)
  - CONDITION AGGRAVATED [None]
  - HAEMOLYTIC ANAEMIA [None]
